FAERS Safety Report 5025374-2 (Version None)
Quarter: 2006Q2

REPORT INFORMATION
  Report Type: 
  Country: None (occurrence: None)
  Receive Date: 20060608
  Receipt Date: 20060525
  Transmission Date: 20061013
  Serious: Yes (Hospitalization)
  Sender: FDA-Public Use
  Company Number: 2006058693

PATIENT
  Age: 45 Year
  Sex: Male
  Weight: 165.5629 kg

DRUGS (5)
  1. CELEBREX [Suspect]
     Indication: PAIN
     Dosage: 200 MG (200 MG, 1 IN 1 D)
     Dates: start: 20001101
  2. BEXTRA [Suspect]
     Indication: BACK PAIN
     Dates: start: 20020528
  3. LANSOPRAZOLE [Concomitant]
  4. VERAPAMIL [Concomitant]
  5. ALBUTEROL [Concomitant]

REACTIONS (14)
  - AMNESIA [None]
  - BRAIN STEM INFARCTION [None]
  - CEREBROVASCULAR ACCIDENT [None]
  - CHEST DISCOMFORT [None]
  - CHEST PAIN [None]
  - DIZZINESS [None]
  - DYSPNOEA [None]
  - GASTROOESOPHAGEAL REFLUX DISEASE [None]
  - HYPOAESTHESIA [None]
  - LOSS OF CONSCIOUSNESS [None]
  - NAUSEA [None]
  - OXYGEN SATURATION DECREASED [None]
  - PHOTOPHOBIA [None]
  - SYNCOPE [None]
